FAERS Safety Report 13247423 (Version 1)
Quarter: 2017Q1

REPORT INFORMATION
  Report Type: Spontaneous
  Country: PL (occurrence: PL)
  Receive Date: 20170217
  Receipt Date: 20170217
  Transmission Date: 20170428
  Serious: Yes (Other)
  Sender: FDA-Public Use
  Company Number: PL-SA-RENA-1000523

PATIENT
  Age: 30 Month
  Sex: Female

DRUGS (7)
  1. RENAGEL [Suspect]
     Active Substance: SEVELAMER HYDROCHLORIDE
     Indication: HYPERPHOSPHATAEMIA
     Dosage: 200 MG/KG, QD
     Route: 048
  2. ALFACALCIDOL [Concomitant]
     Active Substance: ALFACALCIDOL
     Indication: HYPERPHOSPHATAEMIA
     Dosage: 2 MCG, QD
     Route: 065
  3. CALCIUM CARBONATE. [Concomitant]
     Active Substance: CALCIUM CARBONATE
     Indication: HYPERPHOSPHATAEMIA
     Dosage: 200 MG/KG, QD
     Route: 048
  4. VITAMIN D3 [Concomitant]
     Active Substance: CHOLECALCIFEROL
     Indication: HYPERPHOSPHATAEMIA
     Dosage: 1000 IU, QD
  5. ALFACALCIDOL [Concomitant]
     Active Substance: ALFACALCIDOL
     Indication: HYPERPHOSPHATAEMIA
     Dosage: 5 MCG, QD
     Route: 065
  6. ALFACALCIDOL [Concomitant]
     Active Substance: ALFACALCIDOL
     Indication: HYPERPHOSPHATAEMIA
     Dosage: 3 MCG, QD
     Route: 065
  7. ALFACALCIDOL [Concomitant]
     Active Substance: ALFACALCIDOL
     Indication: HYPERPHOSPHATAEMIA
     Dosage: 0.5 MCG, QD
     Route: 065

REACTIONS (5)
  - Chronic kidney disease-mineral and bone disorder [Recovered/Resolved]
  - Drug ineffective [Unknown]
  - Hyperphosphataemia [Unknown]
  - Osteonecrosis [Unknown]
  - Anaemia [Recovered/Resolved]
